FAERS Safety Report 8543607-2 (Version None)
Quarter: 2012Q3

REPORT INFORMATION
  Report Type: 
  Country: None (occurrence: None)
  Receive Date: 20120727
  Receipt Date: 20120720
  Transmission Date: 20120928
  Serious: Yes (Hospitalization)
  Sender: FDA-Public Use
  Company Number: US-B.I. PHARMACEUTICALS,INC./RIDGEFIELD-2012-BP-16254BP

PATIENT
  Sex: Male

DRUGS (7)
  1. LISINOPRIL [Concomitant]
     Dosage: 2.5 MG
     Route: 048
     Dates: start: 20111101
  2. CARVEDILOL [Concomitant]
     Dosage: 6.25 MG
     Route: 048
     Dates: start: 20111101
  3. POTASSIUM CHLORIDE [Concomitant]
     Dosage: 40 MEQ
     Route: 048
     Dates: start: 20111101
  4. PRADAXA [Suspect]
     Indication: CARDIAC FAILURE CONGESTIVE
     Dosage: 300 MG
     Route: 048
     Dates: start: 20111101, end: 20120718
  5. PRADAXA [Suspect]
  6. FUROSEMIDE [Concomitant]
     Dosage: 40 MG
     Route: 048
     Dates: start: 20111101
  7. DIGOXIN [Concomitant]
     Dates: start: 20111101

REACTIONS (4)
  - LOSS OF CONSCIOUSNESS [None]
  - OXYGEN SATURATION DECREASED [None]
  - WRONG TECHNIQUE IN DRUG USAGE PROCESS [None]
  - CAROTID ARTERY STENOSIS [None]
